FAERS Safety Report 4411953-X (Version None)
Quarter: 2004Q3

REPORT INFORMATION
  Report Type: 
  Country: None (occurrence: None)
  Receive Date: 20040730
  Receipt Date: 20040713
  Transmission Date: 20050211
  Serious: Yes (Hospitalization)
  Sender: FDA-Public Use
  Company Number: 200412313JP

PATIENT
  Age: 76 Year
  Sex: Male
  Weight: 45.4 kg

DRUGS (3)
  1. LANTUS [Suspect]
     Indication: DIABETES MELLITUS NON-INSULIN-DEPENDENT
     Dosage: DOSE UNIT: UNITS
     Route: 058
     Dates: start: 20040630, end: 20040704
  2. OPTIPEN (INSULIN PUMP) [Suspect]
  3. NOVORAPID [Concomitant]
     Indication: DIABETES MELLITUS NON-INSULIN-DEPENDENT
     Dosage: DOSE: 6-8; DOSE UNIT: UNITS
     Route: 058
     Dates: start: 20040621

REACTIONS (4)
  - DRUG ERUPTION [None]
  - ECZEMA [None]
  - ERYTHEMA MULTIFORME [None]
  - RASH GENERALISED [None]
